FAERS Safety Report 15604479 (Version 1)
Quarter: 2018Q4

REPORT INFORMATION
  Report Type: Spontaneous
  Country: CN (occurrence: CN)
  Receive Date: 20181110
  Receipt Date: 20181110
  Transmission Date: 20190205
  Serious: Yes (Hospitalization)
  Sender: FDA-Public Use
  Company Number: PHHY2018CN145628

PATIENT
  Age: 50 Year
  Sex: Female
  Weight: 58 kg

DRUGS (1)
  1. TRILEPTAL [Suspect]
     Active Substance: OXCARBAZEPINE
     Indication: AFFECTIVE DISORDER
     Dosage: 0.45 G, BID
     Route: 048
     Dates: start: 20180821, end: 20180827

REACTIONS (6)
  - Pruritus [Recovering/Resolving]
  - Abdominal pain [Recovering/Resolving]
  - Tremor [Recovering/Resolving]
  - Diarrhoea [Recovering/Resolving]
  - Rash [Recovering/Resolving]
  - Pyrexia [Recovering/Resolving]

NARRATIVE: CASE EVENT DATE: 20180827
